FAERS Safety Report 7363716-3 (Version None)
Quarter: 2011Q1

REPORT INFORMATION
  Report Type: 
  Country: None (occurrence: None)
  Receive Date: 20110321
  Receipt Date: 20110311
  Transmission Date: 20110831
  Serious: Yes (Other)
  Sender: FDA-Public Use
  Company Number: US-JNJFOC-20110306343

PATIENT
  Sex: Female
  Weight: 53.52 kg

DRUGS (18)
  1. OMEPRAZOLE [Concomitant]
     Indication: DYSPEPSIA
     Route: 048
  2. FLUOXETINE [Concomitant]
     Indication: DEPRESSION
     Route: 048
  3. FIORICET [Concomitant]
     Indication: HEADACHE
     Route: 048
  4. VITAMIN D [Concomitant]
     Indication: VITAMIN D DEFICIENCY
     Dosage: 50,000 UNITS
     Route: 030
  5. BLADDER INFECTION MEDICATION NOS [Concomitant]
     Indication: BLADDER DISORDER
     Route: 048
  6. VALIUM [Concomitant]
     Indication: ANXIETY
     Dosage: 2.5 - 5MG/AS NEEDED
     Route: 048
  7. ELMIRON [Suspect]
     Route: 048
  8. SYNTHROID [Concomitant]
     Indication: HYPOTHYROIDISM
     Route: 048
  9. DETROL [Concomitant]
     Indication: CYSTITIS INTERSTITIAL
     Route: 048
  10. BACTRIM [Concomitant]
     Indication: INFECTION PROPHYLAXIS
     Dosage: 160- 800MG/HALF A TABLET DAILY
     Route: 048
  11. AMBIEN [Concomitant]
     Indication: SLEEP DISORDER THERAPY
     Route: 048
  12. DARVOCET [Concomitant]
     Indication: BACK PAIN
     Route: 048
  13. FLEXERIL [Concomitant]
     Indication: BACK PAIN
     Route: 048
  14. ZANTAC [Concomitant]
     Indication: DYSPEPSIA
     Route: 048
  15. ELMIRON [Suspect]
     Indication: CYSTITIS INTERSTITIAL
     Dosage: 100 MG TWO CAPSULES DISSOLVED IN 50CC OF SALINE BID AND ONE CAPSULE AT NIGHT/INTRAURETHRAL- ORAL
     Route: 048
  16. PHENAZOPYRIDINE HCL TAB [Concomitant]
     Indication: BLADDER DISORDER
     Route: 048
  17. PROSED/DS [Concomitant]
     Indication: BLADDER DISORDER
     Route: 048
  18. KLONOPIN [Concomitant]
     Indication: SLEEP DISORDER THERAPY
     Route: 048

REACTIONS (13)
  - URINARY TRACT INFECTION [None]
  - BACK PAIN [None]
  - DYSPEPSIA [None]
  - INCORRECT ROUTE OF DRUG ADMINISTRATION [None]
  - VITAMIN B12 DECREASED [None]
  - HEADACHE [None]
  - ASTHENIA [None]
  - DRY EYE [None]
  - VISION BLURRED [None]
  - FEELING COLD [None]
  - DRUG PRESCRIBING ERROR [None]
  - DIARRHOEA [None]
  - ALOPECIA [None]
